FAERS Safety Report 16073722 (Version 3)
Quarter: 2019Q1

REPORT INFORMATION
  Report Type: Report from Study
  Country: US (occurrence: US)
  Receive Date: 20190314
  Receipt Date: 20190321
  Transmission Date: 20190418
  Serious: No
  Sender: FDA-Public Use
  Company Number: PHEH2019US010865

PATIENT
  Age: 17 Year
  Sex: Female

DRUGS (1)
  1. GILENYA [Suspect]
     Active Substance: FINGOLIMOD HYDROCHLORIDE
     Indication: MULTIPLE SCLEROSIS
     Dosage: 0.5 MG, QD
     Route: 048
     Dates: start: 20190307

REACTIONS (7)
  - Neck pain [Recovering/Resolving]
  - Hypotension [Recovered/Resolved]
  - Burning sensation [Unknown]
  - Facial pain [Recovering/Resolving]
  - Hypoaesthesia [Recovering/Resolving]
  - Heart rate increased [Recovered/Resolved]
  - Stress [Unknown]

NARRATIVE: CASE EVENT DATE: 20190307
